FAERS Safety Report 8484433-2 (Version None)
Quarter: 2012Q3

REPORT INFORMATION
  Report Type: 
  Country: None (occurrence: None)
  Receive Date: 20120703
  Receipt Date: 20120622
  Transmission Date: 20120928
  Serious: Yes (Hospitalization, Other)
  Sender: FDA-Public Use
  Company Number: FR-ACTELION-A-CH2011-57521

PATIENT
  Sex: Female
  Weight: 10.3 kg

DRUGS (9)
  1. ACETAMINOPHEN [Concomitant]
  2. ZAVESCA [Suspect]
     Dosage: 50 MG, TID
     Route: 048
     Dates: start: 20120301
  3. VITAMIN TAB [Concomitant]
  4. ZAVESCA [Suspect]
     Indication: NIEMANN-PICK DISEASE
     Dosage: 50 MG, TID
     Route: 048
     Dates: start: 20100301
  5. ZAVESCA [Suspect]
     Dosage: 50 MG, BID
     Route: 048
     Dates: start: 20120101, end: 20120301
  6. ZAVESCA [Suspect]
     Dosage: 50 MG, BID
     Route: 048
  7. MORPHINE [Concomitant]
  8. AMITRIPTYLINE HCL [Concomitant]
  9. VITAMIN K1 [Concomitant]

REACTIONS (12)
  - TREMOR [None]
  - BRONCHIOLITIS [None]
  - THROMBOCYTOPENIA [None]
  - GROWTH RETARDATION [None]
  - CONVULSION [None]
  - EPISTAXIS [None]
  - NEUROPATHY PERIPHERAL [None]
  - INTERSTITIAL LUNG DISEASE [None]
  - GENERAL PHYSICAL HEALTH DETERIORATION [None]
  - DIARRHOEA [None]
  - NEPHROLITHIASIS [None]
  - PAIN [None]
